FAERS Safety Report 13274126 (Version 1)
Quarter: 2017Q1

REPORT INFORMATION
  Report Type: Spontaneous
  Country: US (occurrence: US)
  Receive Date: 20170227
  Receipt Date: 20170227
  Transmission Date: 20170428
  Serious: Yes (Hospitalization)
  Sender: FDA-Public Use
  Company Number: US-SA-2017SA028659

PATIENT
  Age: 84 Year
  Sex: Female

DRUGS (6)
  1. TOUJEO [Concomitant]
     Active Substance: INSULIN GLARGINE
     Dosage: DOSE:40 UNIT(S)
  2. LANTUS SOLOSTAR [Suspect]
     Active Substance: INSULIN GLARGINE
     Indication: TYPE 2 DIABETES MELLITUS
     Dosage: DOSE:40 UNIT(S)
     Route: 065
     Dates: start: 201608
  3. SOLOSTAR [Concomitant]
     Active Substance: DEVICE
  4. SOLOSTAR [Concomitant]
     Active Substance: DEVICE
     Indication: TYPE 2 DIABETES MELLITUS
     Dates: start: 201608
  5. LEVEMIR [Concomitant]
     Active Substance: INSULIN DETEMIR
  6. NOVOLOG [Concomitant]
     Active Substance: INSULIN ASPART

REACTIONS (4)
  - Head injury [Unknown]
  - Incorrect product storage [Unknown]
  - Fall [Unknown]
  - Renal disorder [Unknown]

NARRATIVE: CASE EVENT DATE: 2016
